FAERS Safety Report 4568414-7 (Version None)
Quarter: 2005Q1

REPORT INFORMATION
  Report Type: 
  Country: None (occurrence: None)
  Receive Date: 20050131
  Receipt Date: 20050124
  Transmission Date: 20050727
  Serious: Yes (Hospitalization)
  Sender: FDA-Public Use
  Company Number: 2004-12-0066

PATIENT
  Age: 66 Year
  Sex: Female

DRUGS (4)
  1. TEMODAL [Suspect]
     Indication: ASTROCYTOMA
     Dosage: 120 MG* ORAL
     Route: 048
     Dates: start: 20040909, end: 20041012
  2. TEMODAL [Suspect]
     Indication: ASTROCYTOMA
     Dosage: 120 MG* ORAL
     Route: 048
     Dates: start: 20040909, end: 20041211
  3. TEMODAL [Suspect]
     Indication: ASTROCYTOMA
     Dosage: 120 MG* ORAL
     Route: 048
     Dates: start: 20041206, end: 20041211
  4. RADIOTHERAPY [Concomitant]

REACTIONS (2)
  - PANCYTOPENIA [None]
  - THROMBOPHLEBITIS [None]
